FAERS Safety Report 18139629 (Version 1)
Quarter: 2020Q3

REPORT INFORMATION
  Report Type: Spontaneous
  Country: US (occurrence: US)
  Receive Date: 20200812
  Receipt Date: 20200812
  Transmission Date: 20201103
  Serious: Yes (Other)
  Sender: FDA-Public Use
  Company Number: US-PFIZER INC-2020307001

PATIENT
  Age: 82 Year
  Sex: Female
  Weight: 73.94 kg

DRUGS (1)
  1. SUTENT [Suspect]
     Active Substance: SUNITINIB MALATE
     Indication: LUNG NEOPLASM
     Dosage: UNK
     Dates: end: 20200806

REACTIONS (9)
  - Blood glucose fluctuation [Recovering/Resolving]
  - Off label use [Unknown]
  - Feeling abnormal [Recovering/Resolving]
  - Nausea [Recovered/Resolved]
  - Haematochezia [Recovering/Resolving]
  - Blood uric acid increased [Recovering/Resolving]
  - Product use in unapproved indication [Unknown]
  - Dizziness [Recovered/Resolved]
  - Fall [Recovered/Resolved]

NARRATIVE: CASE EVENT DATE: 202007
